FAERS Safety Report 9283309 (Version 1)
Quarter: 2013Q2

REPORT INFORMATION
  Report Type: Spontaneous
  Country: US (occurrence: US)
  Receive Date: 20130510
  Receipt Date: 20130510
  Transmission Date: 20140414
  Serious: No
  Sender: FDA-Public Use
  Company Number: US-GLAXOSMITHKLINE-A0996542A

PATIENT
  Age: 59 Year
  Sex: Female
  Weight: 95.5 kg

DRUGS (9)
  1. TYKERB [Suspect]
     Indication: PRODUCT USED FOR UNKNOWN INDICATION
     Dosage: 1250MG PER DAY
     Route: 048
  2. XELODA [Concomitant]
     Route: 048
  3. KLOR-CON [Concomitant]
     Route: 048
  4. GLIPIZIDE [Concomitant]
     Route: 048
  5. IRBESARTAN [Concomitant]
     Route: 048
  6. SIMVASTATIN [Concomitant]
     Route: 048
  7. DIPHEN/ATROP [Concomitant]
     Route: 048
  8. ATIVAN [Concomitant]
     Route: 048
  9. IRBESARTAN HYDROCHLOROTHIAZIDE [Concomitant]

REACTIONS (3)
  - Dermatitis acneiform [Unknown]
  - Diarrhoea [Unknown]
  - Hepatic function abnormal [Unknown]
